FAERS Safety Report 4626870-X (Version None)
Quarter: 2005Q2

REPORT INFORMATION
  Report Type: 
  Country: None (occurrence: None)
  Receive Date: 20050405
  Receipt Date: 20050323
  Transmission Date: 20051028
  Serious: Yes (Hospitalization)
  Sender: FDA-Public Use
  Company Number: US-AMGEN-US121159

PATIENT
  Age: 56 Year

DRUGS (8)
  1. SENSIPAR [Suspect]
     Indication: HYPERPARATHYROIDISM SECONDARY
     Route: 048
     Dates: start: 20050112
  2. HEPARIN [Concomitant]
  3. ATACAND [Concomitant]
  4. CATAPRES-TTS-1 [Concomitant]
     Route: 062
  5. PRILOSEC [Concomitant]
  6. RENAGEL [Concomitant]
  7. REMERON [Concomitant]
  8. MINOXIDIL [Concomitant]

REACTIONS (2)
  - PNEUMONIA [None]
  - THROMBOCYTOPENIA [None]
